FAERS Safety Report 21898756 (Version 1)
Quarter: 2023Q1

REPORT INFORMATION
  Report Type: Spontaneous
  Country: US (occurrence: None)
  Receive Date: 20230123
  Receipt Date: 20230123
  Transmission Date: 20230417
  Serious: No
  Sender: FDA-Public Use
  Company Number: 2023A012995

PATIENT
  Age: 62 Year
  Sex: Female

DRUGS (2)
  1. FARXIGA [Suspect]
     Active Substance: DAPAGLIFLOZIN PROPANEDIOL
     Route: 048
  2. VYNDAMAX [Suspect]
     Active Substance: TAFAMIDIS
     Route: 065

REACTIONS (12)
  - Disease progression [Recovering/Resolving]
  - Dizziness [Recovering/Resolving]
  - Hypotension [Recovering/Resolving]
  - Dyspnoea [Recovering/Resolving]
  - Decreased activity [Recovering/Resolving]
  - Musculoskeletal discomfort [Recovering/Resolving]
  - Head discomfort [Recovering/Resolving]
  - Headache [Recovering/Resolving]
  - Hypoaesthesia [Recovering/Resolving]
  - Pain [Recovering/Resolving]
  - Weight increased [Recovering/Resolving]
  - Intentional product misuse [Recovering/Resolving]
